FAERS Safety Report 25980444 (Version 1)
Quarter: 2025Q4

REPORT INFORMATION
  Report Type: Spontaneous
  Country: US (occurrence: None)
  Receive Date: 20251027
  Receipt Date: 20251027
  Transmission Date: 20260118
  Serious: Yes (Other)
  Sender: FDA-CTU
  Company Number: None

PATIENT
  Age: 46 Year
  Sex: Male
  Weight: 85.5 kg

DRUGS (2)
  1. UNSPECIFIED INGREDIENT [Suspect]
     Active Substance: UNSPECIFIED INGREDIENT
     Indication: Acupuncture
     Dosage: TOPICAL???STRENGH :  VERY HIGH MG
     Route: 061
  2. athletic greens (AG1) [Concomitant]

REACTIONS (12)
  - Insomnia [None]
  - Cognitive disorder [None]
  - Tremor [None]
  - Heart rate increased [None]
  - Feeling hot [None]
  - Anxiety [None]
  - Restlessness [None]
  - Fatigue [None]
  - Emotional disorder [None]
  - Blood caffeine increased [None]
  - Product communication issue [None]
  - Victim of crime [None]

NARRATIVE: CASE EVENT DATE: 20251026
